FAERS Safety Report 9898818 (Version 3)
Quarter: 2015Q3

REPORT INFORMATION
  Report Type: Spontaneous
  Country: US (occurrence: US)
  Receive Date: 20140214
  Receipt Date: 20150810
  Transmission Date: 20151125
  Serious: Yes (Hospitalization, Other)
  Sender: FDA-Public Use
  Company Number: US-GILEAD-2011-0044376

PATIENT
  Age: 76 Year
  Sex: Female

DRUGS (10)
  1. LETAIRIS [Suspect]
     Active Substance: AMBRISENTAN
     Indication: CARDIAC DISORDER
     Dosage: 5 MG, QD
     Route: 048
     Dates: start: 20110912, end: 20110916
  2. FUROSEMIDE. [Concomitant]
     Active Substance: FUROSEMIDE
  3. LETAIRIS [Suspect]
     Active Substance: AMBRISENTAN
     Indication: PULMONARY HYPERTENSION
     Dosage: 5 MG, QD
     Route: 048
     Dates: start: 201110
  4. ANASTROZOLE. [Concomitant]
     Active Substance: ANASTROZOLE
  5. MOMETASONE [Concomitant]
     Active Substance: MOMETASONE
  6. POTASSIUM CHLORIDE. [Concomitant]
     Active Substance: POTASSIUM CHLORIDE
  7. ALBUTEROL                          /00139501/ [Concomitant]
     Active Substance: ALBUTEROL
  8. GLIPIZIDE. [Concomitant]
     Active Substance: GLIPIZIDE
  9. SPIRONOLACTONE. [Concomitant]
     Active Substance: SPIRONOLACTONE
  10. MINIPRESS [Concomitant]
     Active Substance: PRAZOSIN HYDROCHLORIDE

REACTIONS (4)
  - Hypoxia [Unknown]
  - Face oedema [Unknown]
  - Oedema peripheral [Unknown]
  - Pulmonary oedema [Recovering/Resolving]

NARRATIVE: CASE EVENT DATE: 20110915
